FAERS Safety Report 9827044 (Version 1)
Quarter: 2014Q1

REPORT INFORMATION
  Report Type: Spontaneous
  Country: US (occurrence: US)
  Receive Date: 20140117
  Receipt Date: 20140117
  Transmission Date: 20141002
  Serious: No
  Sender: FDA-Public Use
  Company Number: US-GLAXOSMITHKLINE-A1027687A

PATIENT
  Age: 59 Year
  Sex: Female

DRUGS (10)
  1. PROMACTA [Suspect]
     Indication: IMMUNE THROMBOCYTOPENIC PURPURA
     Dosage: 25MG PER DAY
     Route: 048
     Dates: start: 20130607, end: 20130618
  2. TYLENOL [Concomitant]
  3. VITAMIN D3 [Concomitant]
  4. BENADRYL [Concomitant]
  5. FLONASE [Concomitant]
  6. LORAZEPAM [Concomitant]
  7. VITAMIN [Concomitant]
  8. PREDNISONE [Concomitant]
  9. ZANTAC [Concomitant]
  10. TUMS [Concomitant]

REACTIONS (4)
  - Neutropenia [Not Recovered/Not Resolved]
  - Haematocrit decreased [Unknown]
  - Haemoglobin decreased [Unknown]
  - Platelet count decreased [Unknown]
